FAERS Safety Report 5239463-0 (Version None)
Quarter: 2007Q1

REPORT INFORMATION
  Report Type: 
  Country: None (occurrence: None)
  Receive Date: 20070216
  Receipt Date: 20070208
  Transmission Date: 20070707
  Serious: Yes (Life-Threatening)
  Sender: FDA-Public Use
  Company Number: GR-JNJFOC-20070202210

PATIENT
  Age: 70 Year
  Sex: Female

DRUGS (3)
  1. REMICADE [Suspect]
     Indication: RHEUMATOID ARTHRITIS
     Route: 042
  2. PREDNISOLONE [Concomitant]
     Indication: RHEUMATOID ARTHRITIS
     Route: 048
  3. ANTI-OSTEOPOROSIS TREATMENT [Concomitant]
     Indication: OSTEOPOROSIS
     Route: 065

REACTIONS (1)
  - TUBERCULOSIS [None]
